FAERS Safety Report 22712146 (Version 4)
Quarter: 2024Q1

REPORT INFORMATION
  Report Type: Spontaneous
  Country: CA (occurrence: CA)
  Receive Date: 20230717
  Receipt Date: 20240301
  Transmission Date: 20240410
  Serious: Yes (Life-Threatening, Other)
  Sender: FDA-Public Use
  Company Number: CA-BEH-2023161041

PATIENT
  Age: 74 Year
  Sex: Female
  Weight: 52 kg

DRUGS (2)
  1. PRIVIGEN [Suspect]
     Active Substance: HUMAN IMMUNOGLOBULIN G
     Indication: Necrotising myositis
     Dosage: 347 MILLILITER, EVERY 6 WEEKS
     Route: 042
     Dates: start: 20230503, end: 20230503
  2. PRIVIGEN [Suspect]
     Active Substance: HUMAN IMMUNOGLOBULIN G
     Indication: Prophylaxis

REACTIONS (16)
  - Allergic transfusion reaction [Recovered/Resolved]
  - Hypotension [Recovered/Resolved]
  - Bradycardia [Recovered/Resolved]
  - Hypoxia [Recovered/Resolved]
  - Urticaria [Recovered/Resolved]
  - Lip oedema [Recovered/Resolved]
  - Headache [Recovered/Resolved]
  - Hypoxia [Recovered/Resolved]
  - Blood pressure decreased [Recovered/Resolved]
  - Oedema peripheral [Recovered/Resolved]
  - Oxygen saturation decreased [Recovered/Resolved]
  - Tongue oedema [Recovered/Resolved]
  - Anaphylactic shock [Recovered/Resolved]
  - Angioedema [Recovered/Resolved]
  - No adverse event [Unknown]
  - Off label use [Unknown]

NARRATIVE: CASE EVENT DATE: 20230503
